FAERS Safety Report 23527769 (Version 1)
Quarter: 2024Q1

REPORT INFORMATION
  Report Type: Other
  Country: US (occurrence: US)
  Receive Date: 20240215
  Receipt Date: 20240215
  Transmission Date: 20240410
  Serious: Yes (Death)
  Sender: FDA-Public Use
  Company Number: US-B.Braun Medical Inc.-2153276

PATIENT
  Age: 41 Year
  Sex: Male

DRUGS (1)
  1. LIDOCAINE HYDROCHLORIDE [Suspect]
     Active Substance: LIDOCAINE HYDROCHLORIDE

REACTIONS (18)
  - Dizziness [Fatal]
  - Off label use [Fatal]
  - Medication error [Fatal]
  - Accidental overdose [Fatal]
  - Death [Fatal]
  - Disseminated intravascular coagulation [Fatal]
  - Anuria [Fatal]
  - Platelet count decreased [Fatal]
  - Blood lactic acid increased [Fatal]
  - Blood bicarbonate decreased [Fatal]
  - Blood creatinine increased [Fatal]
  - Blood alkaline phosphatase increased [Fatal]
  - Blood bilirubin increased [Fatal]
  - Alanine aminotransferase increased [Fatal]
  - Aspartate aminotransferase increased [Fatal]
  - Hyperthermia [Fatal]
  - Blood pH decreased [Fatal]
  - Cardiac arrest [Fatal]
